FAERS Safety Report 7632340-7 (Version None)
Quarter: 2011Q3

REPORT INFORMATION
  Report Type: 
  Country: None (occurrence: None)
  Receive Date: 20110725
  Receipt Date: 20100813
  Transmission Date: 20111222
  Serious: Yes (Other)
  Sender: FDA-Public Use
  Company Number: US-BRISTOL-MYERS SQUIBB COMPANY-15228646

PATIENT
  Age: 36 Year
  Sex: Male
  Weight: 93 kg

DRUGS (4)
  1. VERAPAMIL [Concomitant]
  2. COUMADIN [Suspect]
     Indication: AORTIC VALVE REPLACEMENT
     Dosage: 1DF:5MG MOST DAYS AND 7.5 MG ONE OR TWO DAYS A WEEK STARTED PRIOR TO 2005
     Dates: start: 19930101
  3. PREDNISONE [Suspect]
  4. LIPITOR [Concomitant]

REACTIONS (1)
  - HAEMARTHROSIS [None]
